FAERS Safety Report 6105070-0 (Version None)
Quarter: 2009Q1

REPORT INFORMATION
  Report Type: 
  Country: None (occurrence: None)
  Receive Date: 20090304
  Receipt Date: 20090218
  Transmission Date: 20090719
  Serious: Yes (Other)
  Sender: FDA-Public Use
  Company Number: 237421J08USA

PATIENT
  Age: 34 Year
  Sex: Female
  Weight: 111 kg

DRUGS (5)
  1. REBIF [Suspect]
     Indication: MULTIPLE SCLEROSIS
     Dosage: 44 MCG, 3 IN 1 WEEKS, SUBCUTANEOUS
     Route: 058
     Dates: start: 20080312
  2. PAXIL [Concomitant]
  3. BACLOFEN [Concomitant]
  4. VITAMIN D [Concomitant]
  5. VITAMIN B12 [Concomitant]

REACTIONS (1)
  - CHOLELITHIASIS [None]
